FAERS Safety Report 10683355 (Version 1)
Quarter: 2014Q4

REPORT INFORMATION
  Report Type: Spontaneous
  Country: US (occurrence: None)
  Receive Date: 20141229
  Receipt Date: 20141229
  Transmission Date: 20150529
  Serious: Yes (Disabling, Other)
  Sender: FDA-Public Use
  Company Number: None

PATIENT
  Age: 53 Year
  Sex: Female
  Weight: 99.79 kg

DRUGS (1)
  1. LEVOFLOXIN [Suspect]
     Active Substance: LEVOFLOXACIN
     Indication: PNEUMONIA
     Dosage: 8 TAKEN OUT OF 10
     Route: 048
     Dates: start: 20141011, end: 20141218

REACTIONS (13)
  - Nasal dryness [None]
  - Heart rate increased [None]
  - Weight bearing difficulty [None]
  - Nightmare [None]
  - Musculoskeletal disorder [None]
  - Joint swelling [None]
  - Quality of life decreased [None]
  - Tendon rupture [None]
  - Musculoskeletal discomfort [None]
  - Oral candidiasis [None]
  - Dry eye [None]
  - Product quality issue [None]
  - Temperature regulation disorder [None]

NARRATIVE: CASE EVENT DATE: 20141011
